FAERS Safety Report 7326940-1 (Version None)
Quarter: 2011Q1

REPORT INFORMATION
  Report Type: 
  Country: None (occurrence: None)
  Receive Date: 20110302
  Receipt Date: 20110225
  Transmission Date: 20110831
  Serious: Yes (Hospitalization)
  Sender: FDA-Public Use
  Company Number: GB-PFIZER INC-2010058439

PATIENT
  Age: 50 Year
  Sex: Male

DRUGS (2)
  1. PHENYTOIN [Suspect]
     Dosage: 300 MG, 3X/DAY
  2. PHENYTOIN [Suspect]
     Dosage: 100 MG, 3X/DAY

REACTIONS (14)
  - DRUG PRESCRIBING ERROR [None]
  - HEADACHE [None]
  - VOMITING [None]
  - CONSTIPATION [None]
  - DISORIENTATION [None]
  - NYSTAGMUS [None]
  - CONFUSIONAL STATE [None]
  - DYSARTHRIA [None]
  - TOXICITY TO VARIOUS AGENTS [None]
  - DECREASED APPETITE [None]
  - DIZZINESS [None]
  - FALL [None]
  - NAUSEA [None]
  - URINARY INCONTINENCE [None]
